FAERS Safety Report 11583900 (Version 1)
Quarter: 2015Q4

REPORT INFORMATION
  Report Type: Spontaneous
  Country: US (occurrence: US)
  Receive Date: 20151001
  Receipt Date: 20151001
  Transmission Date: 20160304
  Serious: Yes (Hospitalization, Other)
  Sender: FDA-Public Use
  Company Number: US-ALKERMES INC.-ALK-2015-001011

PATIENT

DRUGS (2)
  1. TYLENOL [Concomitant]
     Active Substance: ACETAMINOPHEN
     Indication: PAIN
     Dosage: UNK
  2. VIVITROL [Suspect]
     Active Substance: NALTREXONE
     Indication: ALCOHOLISM
     Dosage: 380 MG, QMO
     Route: 030
     Dates: start: 201508

REACTIONS (12)
  - Injection site swelling [Not Recovered/Not Resolved]
  - Injection site inflammation [Not Recovered/Not Resolved]
  - Wound [Not Recovered/Not Resolved]
  - Injection site discharge [Not Recovered/Not Resolved]
  - Injection site rash [Not Recovered/Not Resolved]
  - Rash generalised [Unknown]
  - Injection site reaction [Not Recovered/Not Resolved]
  - Injection site necrosis [Not Recovered/Not Resolved]
  - Injection site pain [Not Recovered/Not Resolved]
  - Debridement [Recovering/Resolving]
  - Activities of daily living impaired [Unknown]
  - Injection site induration [Not Recovered/Not Resolved]

NARRATIVE: CASE EVENT DATE: 20150922
